FAERS Safety Report 11334668 (Version 6)
Quarter: 2016Q3

REPORT INFORMATION
  Report Type: Report from Study
  Country: DE (occurrence: DE)
  Receive Date: 20150804
  Receipt Date: 20160826
  Transmission Date: 20161109
  Serious: Yes (Hospitalization, Other)
  Sender: FDA-Public Use
  Company Number: DE-ROCHE-1573193

PATIENT
  Age: 68 Year
  Sex: Female

DRUGS (5)
  1. ROACTEMRA [Suspect]
     Active Substance: TOCILIZUMAB
     Indication: RHEUMATOID ARTHRITIS
     Route: 058
     Dates: start: 20140701
  2. ROACTEMRA [Suspect]
     Active Substance: TOCILIZUMAB
     Indication: RHEUMATOID ARTHRITIS
     Route: 042
     Dates: start: 201401, end: 201406
  3. CORTISONE [Concomitant]
     Active Substance: CORTISONE\HYDROCORTISONE
     Route: 065
  4. TILIDIN [Concomitant]
     Active Substance: NALOXONE HYDROCHLORIDE\TILIDINE HYDROCHLORIDE
     Dosage: 200/16 MG
     Route: 065
  5. VERSATIS [Concomitant]
     Active Substance: LIDOCAINE
     Dosage: ONCE IN THE EVENING
     Route: 065

REACTIONS (16)
  - Herpes zoster [Not Recovered/Not Resolved]
  - Gait disturbance [Unknown]
  - White blood cell count decreased [Unknown]
  - Asthenia [Recovered/Resolved]
  - Glassy eyes [Not Recovered/Not Resolved]
  - Intervertebral disc disorder [Unknown]
  - Pruritus genital [Not Recovered/Not Resolved]
  - Nausea [Recovered/Resolved]
  - Chronic gastritis [Unknown]
  - Muscle spasms [Unknown]
  - Diarrhoea [Recovered/Resolved]
  - Coagulopathy [Not Recovered/Not Resolved]
  - Memory impairment [Unknown]
  - Impaired healing [Unknown]
  - Coagulation factor XIII level abnormal [Unknown]
  - Dizziness [Unknown]

NARRATIVE: CASE EVENT DATE: 20150430
